FAERS Safety Report 5029525-5 (Version None)
Quarter: 2006Q2

REPORT INFORMATION
  Report Type: 
  Country: None (occurrence: None)
  Receive Date: 20060620
  Receipt Date: 20051227
  Transmission Date: 20061013
  Serious: No
  Sender: FDA-Public Use
  Company Number: US-GLAXOSMITHKLINE-A0587015A

PATIENT
  Age: 45 Year
  Sex: Male

DRUGS (2)
  1. ZYBAN [Suspect]
     Dosage: 150MG PER DAY
     Route: 048
     Dates: start: 20051221, end: 20051225
  2. NO CONCURRENT MEDICATION [Concomitant]

REACTIONS (8)
  - AMNESIA [None]
  - ANXIETY [None]
  - CHILLS [None]
  - DIZZINESS [None]
  - FEELING DRUNK [None]
  - INSOMNIA [None]
  - MOOD SWINGS [None]
  - VISION BLURRED [None]
